FAERS Safety Report 7512473-6 (Version None)
Quarter: 2011Q2

REPORT INFORMATION
  Report Type: 
  Country: None (occurrence: None)
  Receive Date: 20110531
  Receipt Date: 20110520
  Transmission Date: 20111010
  Serious: Yes (Other)
  Sender: FDA-Public Use
  Company Number: BR-ROCHE-774476

PATIENT
  Sex: Female
  Weight: 96 kg

DRUGS (6)
  1. HERCEPTIN [Suspect]
     Route: 042
     Dates: start: 20090609, end: 20100601
  2. HERCEPTIN [Suspect]
     Indication: BREAST CANCER
     Dosage: 1ST DAY
     Route: 042
     Dates: start: 20090608
  3. HERCEPTIN [Suspect]
     Route: 042
  4. DOXORUBICIN HCL [Concomitant]
  5. TAXOL [Suspect]
     Indication: BREAST CANCER
     Route: 065
  6. CYCLOPHOSPHAMIDE [Concomitant]

REACTIONS (3)
  - PATHOLOGICAL FRACTURE [None]
  - INTERSTITIAL LUNG DISEASE [None]
  - CARDIOTOXICITY [None]
